FAERS Safety Report 5603427-5 (Version None)
Quarter: 2008Q1

REPORT INFORMATION
  Report Type: 
  Country: None (occurrence: None)
  Receive Date: 20080123
  Receipt Date: 20080114
  Transmission Date: 20080703
  Serious: Yes (Death, Hospitalization)
  Sender: FDA-Public Use
  Company Number: FLUO20080001

PATIENT
  Age: 70 Year
  Sex: Male

DRUGS (3)
  1. FLUOROURACIL [Suspect]
     Indication: COLON CANCER
     Dosage: 725 MG BOLUS + 4400 MG/46 HRS, 9 CYCLES, INTRAVENOUS
     Route: 042
     Dates: start: 20060801, end: 20070514
  2. IRINOTECAN [Suspect]
     Indication: COLON CANCER
     Dosage: 330 MG/2 HRS, 9 CYCLES, INTRAVENOUS
     Route: 042
     Dates: start: 20060801, end: 20070514
  3. FOLINIC ACID [Suspect]
     Indication: COLON CANCER
     Dosage: 725 MG/2 HRS, 9 CYCLES, INTRAVENOUS
     Route: 042
     Dates: start: 20060801, end: 20070514

REACTIONS (9)
  - ARTERIOSPASM CORONARY [None]
  - BRAIN DEATH [None]
  - CARDIAC ARREST [None]
  - CARDIAC DEATH [None]
  - CARDIOTOXICITY [None]
  - COMA [None]
  - DIARRHOEA [None]
  - MYOCARDIAL INFARCTION [None]
  - VENTRICULAR FIBRILLATION [None]
